FAERS Safety Report 15642441 (Version 1)
Quarter: 2018Q4

REPORT INFORMATION
  Report Type: Other
  Country: US (occurrence: US)
  Receive Date: 20181121
  Receipt Date: 20181121
  Transmission Date: 20190205
  Serious: Yes (Death, Hospitalization, Other)
  Sender: FDA-Public Use
  Company Number: US-ASTELLAS-2018US049360

PATIENT
  Age: 19 Year
  Sex: Female

DRUGS (4)
  1. AMBISOME [Suspect]
     Active Substance: AMPHOTERICIN B
     Indication: ASPERGILLUS INFECTION
     Dosage: UNK, UNKNOWN FREQ.
     Route: 065
  2. POSACONAZOLE [Suspect]
     Active Substance: POSACONAZOLE
     Indication: MUCORMYCOSIS
     Dosage: UNK, UNKNOWN FREQ.
     Route: 065
  3. VORICONAZOLE. [Suspect]
     Active Substance: VORICONAZOLE
     Indication: ASPERGILLUS INFECTION
     Dosage: UNK, UNKNOWN FREQ.
     Route: 065
  4. MICAFUNGIN. [Suspect]
     Active Substance: MICAFUNGIN SODIUM
     Indication: ASPERGILLUS INFECTION
     Dosage: UNK, UNKNOWN FREQ.
     Route: 065

REACTIONS (11)
  - Treatment failure [Fatal]
  - Haematemesis [Fatal]
  - Fungal skin infection [Fatal]
  - Condition aggravated [Fatal]
  - Gastric ulcer [Fatal]
  - Mucormycosis [Fatal]
  - Gastrointestinal fungal infection [Fatal]
  - Central nervous system fungal infection [Fatal]
  - Aspergillus infection [Fatal]
  - Soft tissue necrosis [Fatal]
  - Mucosal ulceration [Fatal]
